FAERS Safety Report 13384311 (Version 1)
Quarter: 2017Q1

REPORT INFORMATION
  Report Type: Spontaneous
  Country: US (occurrence: US)
  Receive Date: 20170329
  Receipt Date: 20170329
  Transmission Date: 20170429
  Serious: Yes (Hospitalization)
  Sender: FDA-Public Use
  Company Number: None

PATIENT
  Age: 7 Year
  Sex: Female

DRUGS (7)
  1. FLOVENT [Concomitant]
     Active Substance: FLUTICASONE PROPIONATE
  2. TOBRAMYCIN. [Suspect]
     Active Substance: TOBRAMYCIN
     Indication: CYSTIC FIBROSIS
     Dosage: ROUTE - VIA NEBULIZER
     Dates: start: 20170223
  3. FLONASE [Concomitant]
     Active Substance: FLUTICASONE PROPIONATE
  4. KEPPRA [Concomitant]
     Active Substance: LEVETIRACETAM
  5. CLARITIN [Concomitant]
     Active Substance: LORATADINE
  6. TOPIRAMATE. [Concomitant]
     Active Substance: TOPIRAMATE
  7. ALBUTEROL. [Concomitant]
     Active Substance: ALBUTEROL

REACTIONS (1)
  - Respiratory disorder [None]

NARRATIVE: CASE EVENT DATE: 20170322
